FAERS Safety Report 13495253 (Version 1)
Quarter: 2017Q2

REPORT INFORMATION
  Report Type: Spontaneous
  Country: US (occurrence: US)
  Receive Date: 20170428
  Receipt Date: 20170428
  Transmission Date: 20170830
  Serious: Yes (Hospitalization)
  Sender: FDA-Public Use
  Company Number: US-TAKEDA-2017MPI003765

PATIENT
  Sex: Female

DRUGS (2)
  1. MORPHINE [Concomitant]
     Active Substance: MORPHINE
     Indication: PAIN
     Dosage: UNK
     Route: 065
  2. VELCADE [Suspect]
     Active Substance: BORTEZOMIB
     Indication: LIGHT CHAIN DISEASE
     Dosage: UNK
     Route: 058
     Dates: start: 201611, end: 20170111

REACTIONS (7)
  - Off label use [Unknown]
  - Blister [Recovered/Resolved]
  - Neuropathy peripheral [Unknown]
  - Nausea [Unknown]
  - Impaired quality of life [Unknown]
  - Vomiting [Unknown]
  - Vision blurred [Unknown]
